FAERS Safety Report 8439789-3 (Version None)
Quarter: 2012Q2

REPORT INFORMATION
  Report Type: 
  Country: None (occurrence: None)
  Receive Date: 20120615
  Receipt Date: 20120523
  Transmission Date: 20120825
  Serious: No
  Sender: FDA-Public Use
  Company Number: US-B.I. PHARMACEUTICALS,INC./RIDGEFIELD-2012-BP-11494BP

PATIENT
  Age: 81 Year
  Sex: Female

DRUGS (3)
  1. PRADAXA [Suspect]
     Indication: ATRIAL FIBRILLATION
     Dates: start: 20101201
  2. EYE DROPS [Concomitant]
     Indication: NEOPLASM MALIGNANT
     Dates: start: 20060101
  3. METOPROLOL SUCCINATE [Concomitant]
     Indication: ATRIAL FIBRILLATION
     Dates: start: 20101201

REACTIONS (3)
  - DYSPEPSIA [None]
  - ABDOMINAL DISCOMFORT [None]
  - DISCOMFORT [None]
